FAERS Safety Report 11312070 (Version 1)
Quarter: 2015Q3

REPORT INFORMATION
  Report Type: Spontaneous
  Country: US (occurrence: US)
  Receive Date: 20150727
  Receipt Date: 20150727
  Transmission Date: 20151125
  Serious: Yes (Other)
  Sender: FDA-Public Use
  Company Number: US-PFIZER INC-2015245140

PATIENT
  Sex: Female

DRUGS (1)
  1. PREMARIN [Suspect]
     Active Substance: ESTROGENS, CONJUGATED
     Dosage: UNK
     Dates: end: 2003

REACTIONS (5)
  - Nervousness [Unknown]
  - Visual impairment [Unknown]
  - Nasopharyngitis [Unknown]
  - Neoplasm malignant [Unknown]
  - Infection [Unknown]
